FAERS Safety Report 25323170 (Version 1)
Quarter: 2025Q2

REPORT INFORMATION
  Report Type: Spontaneous
  Country: JP (occurrence: JP)
  Receive Date: 20250516
  Receipt Date: 20250516
  Transmission Date: 20250716
  Serious: Yes (Other)
  Sender: MYLAN
  Company Number: JP-VIATRISJAPAN-2025M1040456AA

PATIENT
  Age: 41 Year
  Sex: Female

DRUGS (2)
  1. ANHIBA [Suspect]
     Active Substance: ACETAMINOPHEN
     Indication: Pain
     Dosage: 2400 MILLIGRAM, QD
  2. NAPROXEN [Suspect]
     Active Substance: NAPROXEN
     Indication: Pain
     Dosage: 300 MILLIGRAM, QD

REACTIONS (2)
  - Disease progression [Unknown]
  - Drug ineffective [Unknown]
